FAERS Safety Report 6685178-1 (Version None)
Quarter: 2010Q2

REPORT INFORMATION
  Report Type: 
  Country: None (occurrence: None)
  Receive Date: 20100416
  Receipt Date: 20100414
  Transmission Date: 20101027
  Serious: Yes (Other)
  Sender: FDA-Public Use
  Company Number: US-ASTRAZENECA-2010SE16540

PATIENT
  Age: 83 Year
  Sex: Female

DRUGS (4)
  1. SYMBICORT [Suspect]
     Indication: EMPHYSEMA
     Dosage: TOTAL DAILY DOSE: 640 UG
     Route: 055
     Dates: start: 20100201
  2. LEVOTHYROXINE [Concomitant]
  3. ATROVENT [Concomitant]
  4. LASIX [Concomitant]

REACTIONS (3)
  - DRY MOUTH [None]
  - HEART VALVE REPLACEMENT [None]
  - NEOPLASM MALIGNANT [None]
